FAERS Safety Report 5331877-3 (Version None)
Quarter: 2007Q2

REPORT INFORMATION
  Report Type: 
  Country: None (occurrence: None)
  Receive Date: 20070521
  Receipt Date: 20070406
  Transmission Date: 20071010
  Serious: Yes (Hospitalization, Disabling)
  Sender: FDA-Public Use
  Company Number: SP01117

PATIENT
  Age: 41 Year
  Sex: Female
  Weight: 61.2356 kg

DRUGS (2)
  1. COLAZAL [Suspect]
     Dosage: 750 MG, ORAL
     Route: 048
     Dates: end: 20060101
  2. PENTASA [Suspect]
     Dates: end: 20060101

REACTIONS (5)
  - HYPERSENSITIVITY [None]
  - LIP PAIN [None]
  - LIP SWELLING [None]
  - PANCREATITIS [None]
  - RASH [None]
